FAERS Safety Report 11936169 (Version 2)
Quarter: 2016Q3

REPORT INFORMATION
  Report Type: Report from Study
  Country: US (occurrence: US)
  Receive Date: 20160121
  Receipt Date: 20160726
  Transmission Date: 20161109
  Serious: No
  Sender: FDA-Public Use
  Company Number: US-AMGEN-USASL2015140831

PATIENT
  Age: 50 Year
  Sex: Female

DRUGS (10)
  1. KYPROLIS [Suspect]
     Active Substance: CARFILZOMIB
     Dosage: UNK, THREE WEEKS ON AND ONE WEEK OFF
     Route: 065
  2. DEXAMETHASONE. [Concomitant]
     Active Substance: DEXAMETHASONE
     Dosage: 40 MG, UNK
  3. KYPROLIS [Suspect]
     Active Substance: CARFILZOMIB
     Indication: PLASMA CELL MYELOMA
     Dosage: 50 MG, DAYS 1 AND 2 OF EACH WEEK
     Route: 065
  4. KYPROLIS [Suspect]
     Active Substance: CARFILZOMIB
     Dosage: UNK, QWK
     Route: 065
  5. KYPROLIS [Suspect]
     Active Substance: CARFILZOMIB
     Dosage: UNK, QWK
     Route: 065
  6. BENADRYL [Concomitant]
     Active Substance: DIPHENHYDRAMINE HYDROCHLORIDE
     Dosage: UNK
  7. ZOFRAN [Concomitant]
     Active Substance: ONDANSETRON HYDROCHLORIDE
     Dosage: UNK
  8. KYPROLIS [Suspect]
     Active Substance: CARFILZOMIB
     Dosage: 100 MG, ON DAY 1 OF EACH WEEK
     Route: 065
     Dates: start: 201512
  9. KYPROLIS [Suspect]
     Active Substance: CARFILZOMIB
     Dosage: UNK UNK, QWK
     Route: 065
  10. KYPROLIS [Suspect]
     Active Substance: CARFILZOMIB
     Dosage: UNK UNK, 2 TIMES/WK
     Route: 065

REACTIONS (14)
  - Influenza like illness [Unknown]
  - Chills [Not Recovered/Not Resolved]
  - Animal bite [Unknown]
  - Pyrexia [Unknown]
  - Headache [Recovered/Resolved]
  - Sleep disorder due to general medical condition, insomnia type [Not Recovered/Not Resolved]
  - Vomiting [Unknown]
  - Corrective lens user [Unknown]
  - Nasal congestion [Unknown]
  - Light chain analysis increased [Unknown]
  - Malaise [Unknown]
  - Nausea [Unknown]
  - Pain [Unknown]
  - Inappropriate schedule of drug administration [Unknown]

NARRATIVE: CASE EVENT DATE: 201512
